FAERS Safety Report 21718348 (Version 2)
Quarter: 2022Q4

REPORT INFORMATION
  Report Type: Report from Study
  Country: US (occurrence: US)
  Receive Date: 20221212
  Receipt Date: 20221213
  Transmission Date: 20230113
  Serious: No
  Sender: FDA-Public Use
  Company Number: US-ABBVIE-4225858

PATIENT
  Age: 36 Year
  Sex: Male

DRUGS (1)
  1. SKYRIZI [Suspect]
     Active Substance: RISANKIZUMAB-RZAA
     Indication: Product used for unknown indication
     Dosage: 150 MG, FREQUENCY TEXT: NDC NO. 00074210001, FIRST ADMIN DATE 2022
     Route: 058

REACTIONS (4)
  - Influenza [Unknown]
  - Pharyngitis streptococcal [Recovered/Resolved]
  - Sinus congestion [Unknown]
  - Pharyngitis streptococcal [Recovered/Resolved]

NARRATIVE: CASE EVENT DATE: 20221001
